FAERS Safety Report 24342827 (Version 1)
Quarter: 2024Q3

REPORT INFORMATION
  Report Type: Spontaneous
  Country: US (occurrence: US)
  Receive Date: 20240920
  Receipt Date: 20240920
  Transmission Date: 20241016
  Serious: Yes (Death, Other)
  Sender: Unknown Manufacturer
  Company Number: US-862174955-ML2024-04916

PATIENT
  Age: 82 Year

DRUGS (8)
  1. APIXABAN [Suspect]
     Active Substance: APIXABAN
     Indication: Suicide attempt
  2. KETOROLAC [Suspect]
     Active Substance: KETOROLAC TROMETHAMINE
     Indication: Suicide attempt
  3. TAMSULOSIN [Suspect]
     Active Substance: TAMSULOSIN
     Indication: Suicide attempt
  4. LISINOPRIL [Suspect]
     Active Substance: LISINOPRIL
     Indication: Suicide attempt
  5. BACLOFEN [Suspect]
     Active Substance: BACLOFEN
     Indication: Suicide attempt
  6. DONEPEZIL [Suspect]
     Active Substance: DONEPEZIL\DONEPEZIL HYDROCHLORIDE
     Indication: Suicide attempt
     Dosage: 2900 NG/ML
  7. FINASTERIDE [Suspect]
     Active Substance: FINASTERIDE
     Indication: Suicide attempt
  8. SOTALOL [Suspect]
     Active Substance: SOTALOL\SOTALOL HYDROCHLORIDE
     Indication: Suicide attempt

REACTIONS (3)
  - Toxicity to various agents [Fatal]
  - Completed suicide [Fatal]
  - Intentional overdose [Fatal]
